FAERS Safety Report 6694220-3 (Version None)
Quarter: 2010Q2

REPORT INFORMATION
  Report Type: 
  Country: None (occurrence: None)
  Receive Date: 20100423
  Receipt Date: 20100326
  Transmission Date: 20101027
  Serious: Yes (Death, Hospitalization, Other)
  Sender: FDA-Public Use
  Company Number: US-BAXTER-2009BH018286

PATIENT
  Age: 82 Year
  Sex: Female

DRUGS (7)
  1. HEPARIN SODIUM INJECTION [Suspect]
     Indication: CARDIAC PACEMAKER INSERTION
     Route: 042
     Dates: start: 20071119
  2. HEPARIN SODIUM INJECTION [Suspect]
     Route: 042
     Dates: start: 20071123
  3. ANTIHYPERTENSIVES [Concomitant]
     Indication: HYPERTENSION
     Route: 065
  4. WARFARIN SODIUM [Concomitant]
     Indication: DRUG USE FOR UNKNOWN INDICATION
     Route: 065
  5. MULTI-VITAMINS [Concomitant]
     Indication: DRUG USE FOR UNKNOWN INDICATION
     Route: 065
  6. OXYGEN [Concomitant]
     Indication: DRUG USE FOR UNKNOWN INDICATION
     Route: 065
  7. NITROGLYCERIN [Concomitant]
     Indication: DRUG USE FOR UNKNOWN INDICATION
     Route: 061

REACTIONS (8)
  - ACUTE MYOCARDIAL INFARCTION [None]
  - BLOOD PRESSURE DECREASED [None]
  - DYSPHAGIA [None]
  - ORAL FUNGAL INFECTION [None]
  - ORGAN FAILURE [None]
  - PULMONARY OEDEMA [None]
  - SWOLLEN TONGUE [None]
  - SYNCOPE [None]
